FAERS Safety Report 5343801-8 (Version None)
Quarter: 2007Q2

REPORT INFORMATION
  Report Type: 
  Country: None (occurrence: None)
  Receive Date: 20070604
  Receipt Date: 20070524
  Transmission Date: 20071010
  Serious: Yes (Hospitalization, Other)
  Sender: FDA-Public Use
  Company Number: DE-AMGEN-UK226536

PATIENT
  Sex: Male

DRUGS (5)
  1. KEPIVANCE [Suspect]
     Indication: MUCOSAL INFLAMMATION
     Dates: start: 20070101
  2. METHOTREXATE SODIUM [Concomitant]
  3. ASPARAGINASE [Concomitant]
  4. COTRIM [Concomitant]
  5. CIPROFLOXACIN HCL [Concomitant]

REACTIONS (1)
  - LEUKOPENIA [None]
